FAERS Safety Report 4868718-4 (Version None)
Quarter: 2005Q4

REPORT INFORMATION
  Report Type: 
  Country: None (occurrence: None)
  Receive Date: 20051223
  Receipt Date: 20051215
  Transmission Date: 20060501
  Serious: Yes (Hospitalization, Disabling)
  Sender: FDA-Public Use
  Company Number: 2005169992

PATIENT
  Age: 52 Year
  Sex: Male

DRUGS (7)
  1. TAHOR (ATORVASTATIN) [Suspect]
     Indication: ILL-DEFINED DISORDER
     Dosage: 40 MG (40 MG, 1 IN 1 D), ORAL
     Route: 048
     Dates: start: 20040115, end: 20051118
  2. EZETROL (EZETIMIBE) [Suspect]
     Indication: ILL-DEFINED DISORDER
     Dosage: 10 MG (1 IN 1 D), ORAL
     Route: 048
     Dates: start: 20050615, end: 20051118
  3. LEVOTHYROXINE SODIUM [Concomitant]
  4. MEGAMAG (MAGNESIUM ASCORBOAASPARTATE, MAGNESIUM STEARATE) [Concomitant]
  5. QUININE SULFATE [Concomitant]
  6. AUBEPINE (CRATAEGUS) [Concomitant]
  7. MAGNESIUM ASPARATATE HYDROCHLORIDE (MAGNESIUM ASPARTATE HYDROCHLORIDE) [Concomitant]

REACTIONS (1)
  - TENDON RUPTURE [None]
